FAERS Safety Report 7930055-9 (Version None)
Quarter: 2011Q4

REPORT INFORMATION
  Report Type: 
  Country: None (occurrence: None)
  Receive Date: 20111121
  Receipt Date: 20111115
  Transmission Date: 20120403
  Serious: Yes (Other)
  Sender: FDA-Public Use
  Company Number: PHEH2009US11009

PATIENT
  Sex: Female

DRUGS (13)
  1. HEPARIN [Concomitant]
  2. HYDROMORPHONE HCL [Concomitant]
     Dosage: 2 MG, UNK
  3. OXYCODONE HCL [Concomitant]
  4. PREVACID [Concomitant]
  5. OXYCONTIN [Concomitant]
  6. FOSAMAX [Suspect]
  7. TETRACYCLINE [Concomitant]
  8. METRONIDAZOLE [Concomitant]
  9. ZOMETA [Suspect]
  10. DEXAMETHASONE [Concomitant]
  11. IMODIUM A-D [Concomitant]
  12. CLINDAMYCIN [Concomitant]
  13. ASPIRIN [Concomitant]

REACTIONS (40)
  - OSTEONECROSIS OF JAW [None]
  - EXPOSED BONE IN JAW [None]
  - CEREBRAL SMALL VESSEL ISCHAEMIC DISEASE [None]
  - TOOTHACHE [None]
  - BRONCHITIS [None]
  - DEEP VEIN THROMBOSIS [None]
  - OSTEOSCLEROSIS [None]
  - DYSPNOEA [None]
  - DEFORMITY [None]
  - KERATOSIS OBTURANS [None]
  - UTERINE LEIOMYOMA [None]
  - ANXIETY [None]
  - EMOTIONAL DISTRESS [None]
  - BONE LESION [None]
  - DIPLOPIA [None]
  - PATHOLOGICAL FRACTURE [None]
  - HYPOAESTHESIA [None]
  - DISABILITY [None]
  - ANHEDONIA [None]
  - NEOPLASM PROGRESSION [None]
  - ARTHRITIS [None]
  - PAIN [None]
  - SPINAL FRACTURE [None]
  - ASTHMA [None]
  - CHOLELITHIASIS [None]
  - BACK PAIN [None]
  - ISCHAEMIC STROKE [None]
  - LYMPHOEDEMA [None]
  - SINUSITIS [None]
  - ABDOMINAL PAIN [None]
  - INJURY [None]
  - INFECTION [None]
  - METASTASES TO CENTRAL NERVOUS SYSTEM [None]
  - CHOLECYSTITIS CHRONIC [None]
  - DIVERTICULUM [None]
  - CHEST PAIN [None]
  - OVERDOSE [None]
  - METASTASES TO BONE [None]
  - OTITIS EXTERNA [None]
  - HEPATIC STEATOSIS [None]
